FAERS Safety Report 10207042 (Version 1)
Quarter: 2014Q2

REPORT INFORMATION
  Report Type: Spontaneous
  Country: US (occurrence: US)
  Receive Date: 20140530
  Receipt Date: 20140530
  Transmission Date: 20141212
  Serious: No
  Sender: FDA-Public Use
  Company Number: US-PFIZER INC-2014148700

PATIENT
  Age: 42 Year
  Sex: Male
  Weight: 138.78 kg

DRUGS (5)
  1. LYRICA [Suspect]
     Indication: NEURALGIA
     Dosage: 150 MG, 2X/DAY
     Route: 048
     Dates: start: 20140520
  2. EFFEXOR-XR [Concomitant]
     Dosage: 225 MG, DAILY
     Dates: start: 2005
  3. TRAZODONE [Concomitant]
     Dosage: 300 MG, UNK
  4. ROBAXIN [Concomitant]
     Dosage: 750 MG, EVERY 8 HOURS
  5. SEROQUEL [Concomitant]
     Dosage: 200 MG, UNK

REACTIONS (2)
  - Hunger [Unknown]
  - Weight increased [Unknown]
